FAERS Safety Report 9514756 (Version 4)
Quarter: 2014Q1

REPORT INFORMATION
  Report Type: Spontaneous
  Country: CH (occurrence: None)
  Receive Date: 20130906
  Receipt Date: 20140115
  Transmission Date: 20141002
  Serious: Yes (Death)
  Sender: FDA-Public Use
  Company Number: 20130475

PATIENT
  Age: 0 Day
  Sex: Male
  Weight: 4.17 kg

DRUGS (2)
  1. FERINJECT [Suspect]
     Indication: FOETAL EXPOSURE TIMING UNSPECIFIED
     Route: 064
     Dates: start: 20130318, end: 20130325
  2. MIRTAZAPINE [Suspect]
     Indication: FOETAL EXPOSURE TIMING UNSPECIFIED

REACTIONS (12)
  - Foetal exposure during pregnancy [None]
  - Foetal hypokinesia [None]
  - Premature separation of placenta [None]
  - Neonatal asphyxia [None]
  - Neonatal hypoxia [None]
  - Cerebral ischaemia [None]
  - Bradycardia [None]
  - Caesarean section [None]
  - Death neonatal [None]
  - Sickle cell anaemia [None]
  - Maternal drugs affecting foetus [None]
  - Multi-organ failure [None]
